FAERS Safety Report 14579328 (Version 1)
Quarter: 2018Q1

REPORT INFORMATION
  Report Type: Spontaneous
  Country: US (occurrence: US)
  Receive Date: 20180227
  Receipt Date: 20180227
  Transmission Date: 20180509
  Serious: No
  Sender: FDA-Public Use
  Company Number: US-SA-2017SA254521

PATIENT
  Age: 62 Year
  Sex: Male

DRUGS (2)
  1. SOLIQUA 100/33 [Suspect]
     Active Substance: INSULIN GLARGINE\LIXISENATIDE
     Indication: TYPE 2 DIABETES MELLITUS
     Dosage: 40-45U
     Route: 065
     Dates: start: 201711
  2. SOLOSTAR [Suspect]
     Active Substance: DEVICE
     Indication: TYPE 2 DIABETES MELLITUS
     Dates: start: 201711

REACTIONS (5)
  - Headache [Unknown]
  - Vomiting [Unknown]
  - Blood glucose abnormal [Unknown]
  - Oropharyngeal pain [Unknown]
  - Nausea [Unknown]
